FAERS Safety Report 24150445 (Version 1)
Quarter: 2024Q3

REPORT INFORMATION
  Report Type: Spontaneous
  Country: CA (occurrence: CA)
  Receive Date: 20240730
  Receipt Date: 20240730
  Transmission Date: 20241016
  Serious: Yes (Life-Threatening, Hospitalization, Disabling)
  Sender: SANDOZ
  Company Number: CA-SANDOZ-SDZ2024CA068979

PATIENT
  Age: 12 Year
  Sex: Female

DRUGS (2)
  1. ATRIANCE [Suspect]
     Active Substance: NELARABINE
     Indication: T-cell type acute leukaemia
     Dosage: 1000 MG, QD (1 EVERY 1 DAYS)
     Route: 042
  2. ATRIANCE [Suspect]
     Active Substance: NELARABINE
     Dosage: 1000 MG
     Route: 042

REACTIONS (1)
  - Neuropathy peripheral [Recovering/Resolving]
